FAERS Safety Report 23147820 (Version 2)
Quarter: 2023Q4

REPORT INFORMATION
  Report Type: Report from Study
  Country: US (occurrence: US)
  Receive Date: 20231106
  Receipt Date: 20231116
  Transmission Date: 20240110
  Serious: Yes (Other)
  Sender: FDA-Public Use
  Company Number: US-JNJFOC-20231073121

PATIENT
  Age: 73 Year
  Sex: Female

DRUGS (2)
  1. SPRAVATO [Suspect]
     Active Substance: ESKETAMINE
     Indication: Depression
     Dates: start: 20231024
  2. SPRAVATO [Suspect]
     Active Substance: ESKETAMINE
     Dates: start: 20231106, end: 20231106

REACTIONS (4)
  - Hypertension [Unknown]
  - Somnolence [Unknown]
  - Euphoric mood [Unknown]
  - Feeling abnormal [Unknown]

NARRATIVE: CASE EVENT DATE: 20231001
